FAERS Safety Report 19655312 (Version 1)
Quarter: 2021Q3

REPORT INFORMATION
  Report Type: Spontaneous
  Country: CN (occurrence: CN)
  Receive Date: 20210804
  Receipt Date: 20210804
  Transmission Date: 20211014
  Serious: Yes (Hospitalization)
  Sender: FDA-Public Use
  Company Number: CN-PFIZER INC-202100958237

PATIENT
  Age: 9 Year
  Sex: Male
  Weight: 27 kg

DRUGS (5)
  1. METHOTREXATE. [Suspect]
     Active Substance: METHOTREXATE
     Indication: ANAPLASTIC LARGE-CELL LYMPHOMA
     Dosage: 5.31 G, 1X/DAY
     Route: 041
     Dates: start: 20210628, end: 20210628
  2. CYTOSAR [Suspect]
     Active Substance: CYTARABINE
     Indication: ANAPLASTIC LARGE-CELL LYMPHOMA
     Dosage: 0.16 G, 2X/DAY
     Route: 041
     Dates: start: 20210701, end: 20210702
  3. VINCRISTINE SULFATE. [Suspect]
     Active Substance: VINCRISTINE SULFATE
     Indication: ANAPLASTIC LARGE-CELL LYMPHOMA
     Dosage: 1.6 MG, 1X/DAY
     Route: 041
     Dates: start: 20210628, end: 20210628
  4. HOLOXAN [Suspect]
     Active Substance: IFOSFAMIDE
     Indication: ANAPLASTIC LARGE-CELL LYMPHOMA
     Dosage: 0.85 G, 1X/DAY
     Route: 041
     Dates: start: 20210628, end: 20210702
  5. ETOPOSIDE. [Suspect]
     Active Substance: ETOPOSIDE
     Indication: ANAPLASTIC LARGE-CELL LYMPHOMA
     Dosage: 106 MG, 1X/DAY
     Route: 041
     Dates: start: 20210701, end: 20210702

REACTIONS (1)
  - Full blood count decreased [Recovering/Resolving]

NARRATIVE: CASE EVENT DATE: 20210705
